FAERS Safety Report 25078348 (Version 2)
Quarter: 2025Q2

REPORT INFORMATION
  Report Type: Report from Study
  Country: CA (occurrence: CA)
  Receive Date: 20250314
  Receipt Date: 20250401
  Transmission Date: 20250717
  Serious: Yes (Other)
  Sender: REGENERON
  Company Number: CA-BAYER-2025A034828

PATIENT
  Sex: Female

DRUGS (2)
  1. EYLEA [Suspect]
     Active Substance: AFLIBERCEPT
     Indication: Age-related macular degeneration
     Dates: start: 20220412
  2. EYLEA [Suspect]
     Active Substance: AFLIBERCEPT
     Dates: start: 20250305

REACTIONS (1)
  - Eyelid tumour [Unknown]
